FAERS Safety Report 14308375 (Version 1)
Quarter: 2017Q4

REPORT INFORMATION
  Report Type: Report from Study
  Country: US (occurrence: US)
  Receive Date: 20171220
  Receipt Date: 20171220
  Transmission Date: 20180321
  Serious: Yes (Other)
  Sender: FDA-Public Use
  Company Number: US-AMGEN-USASL2017185614

PATIENT
  Age: 82 Year
  Sex: Male

DRUGS (1)
  1. REPATHA [Suspect]
     Active Substance: EVOLOCUMAB
     Indication: HYPERLIPIDAEMIA
     Dosage: 140 MG/ML, Q2WK
     Route: 058
     Dates: end: 20171201

REACTIONS (9)
  - Muscle spasms [Unknown]
  - Burning sensation [Unknown]
  - Productive cough [Unknown]
  - Choking [Unknown]
  - Influenza [Not Recovered/Not Resolved]
  - Chest pain [Unknown]
  - Myalgia [Unknown]
  - Nasopharyngitis [Not Recovered/Not Resolved]
  - Sleep disorder due to general medical condition, insomnia type [Unknown]
